FAERS Safety Report 9799849 (Version 2)
Quarter: 2014Q1

REPORT INFORMATION
  Report Type: Spontaneous
  Country: US (occurrence: US)
  Receive Date: 20140106
  Receipt Date: 20140226
  Transmission Date: 20141002
  Serious: Yes (Death)
  Sender: FDA-Public Use
  Company Number: US-GLAXOSMITHKLINE-A1055184A

PATIENT
  Age: 65 Year
  Sex: Female

DRUGS (2)
  1. TYKERB [Suspect]
     Indication: BREAST CANCER
     Dosage: 500MG TWICE PER DAY
     Route: 048
     Dates: start: 20131129
  2. UNKNOWN [Concomitant]

REACTIONS (1)
  - Death [Fatal]
